FAERS Safety Report 19862861 (Version 1)
Quarter: 2021Q3

REPORT INFORMATION
  Report Type: Spontaneous
  Country: PT (occurrence: PT)
  Receive Date: 20210921
  Receipt Date: 20210921
  Transmission Date: 20211014
  Serious: Yes (Other)
  Sender: FDA-Public Use
  Company Number: PT-ELI_LILLY_AND_COMPANY-PT202109005323

PATIENT
  Age: 55 Year
  Sex: Female

DRUGS (2)
  1. VERZENIOS [Suspect]
     Active Substance: ABEMACICLIB
     Indication: BREAST CANCER
     Dosage: 150 MG/ 2 X DIA
     Route: 048
     Dates: start: 20210113
  2. FULVESTRANT. [Concomitant]
     Active Substance: FULVESTRANT
     Indication: BREAST CANCER
     Dosage: UNK, UNKNOWN
     Route: 042

REACTIONS (8)
  - Diarrhoea [Unknown]
  - Rash [Unknown]
  - Stomatitis [Unknown]
  - Alopecia [Unknown]
  - Pruritus [Unknown]
  - Dry skin [Unknown]
  - Dizziness [Unknown]
  - Fatigue [Unknown]

NARRATIVE: CASE EVENT DATE: 20210127
